FAERS Safety Report 25973852 (Version 1)
Quarter: 2025Q4

REPORT INFORMATION
  Report Type: Spontaneous
  Country: CN (occurrence: CN)
  Receive Date: 20251029
  Receipt Date: 20251029
  Transmission Date: 20260118
  Serious: Yes (Hospitalization, Other)
  Sender: DAIICHI
  Company Number: CN-DSJP-DS-2025-171737-CN

PATIENT
  Age: 51 Year
  Sex: Male
  Weight: 67.5 kg

DRUGS (8)
  1. TRASTUZUMAB DERUXTECAN [Suspect]
     Active Substance: TRASTUZUMAB DERUXTECAN
     Indication: Tonsil cancer
     Dosage: 200 MG (200MG + 100ML OF 5% GLU)
     Route: 041
     Dates: start: 20251009, end: 20251009
  2. TRASTUZUMAB DERUXTECAN [Suspect]
     Active Substance: TRASTUZUMAB DERUXTECAN
     Indication: Metastases to skin
  3. IPAROMLIMAB\TUVONRALIMAB [Suspect]
     Active Substance: IPAROMLIMAB\TUVONRALIMAB
     Indication: Tonsil cancer
     Dosage: 200 MG (200MG+NS100ML, IVGTT)
     Route: 041
     Dates: start: 20251003, end: 20251003
  4. IPAROMLIMAB\TUVONRALIMAB [Suspect]
     Active Substance: IPAROMLIMAB\TUVONRALIMAB
     Indication: Metastases to skin
  5. RALTITREXED [Suspect]
     Active Substance: RALTITREXED
     Indication: Tonsil cancer
     Dosage: 3 MG (3MG + 100ML OF NS, IVGTT)
     Route: 041
     Dates: start: 20251007, end: 20251007
  6. RALTITREXED [Suspect]
     Active Substance: RALTITREXED
     Indication: Metastases to skin
  7. SODIUM CHLORIDE [Concomitant]
     Active Substance: SODIUM CHLORIDE
     Indication: Vehicle solution use
     Dosage: 100 ML (200MG+NS100ML, IVGTT)
     Route: 041
     Dates: start: 20251003, end: 20251007
  8. DEXTROSE [Concomitant]
     Active Substance: DEXTROSE MONOHYDRATE
     Indication: Vehicle solution use
     Dosage: 100 ML (200MG + 100ML OF 5% GLU, IVGTT)
     Route: 041
     Dates: start: 20251009, end: 20251009

REACTIONS (3)
  - Drug-induced liver injury [Not Recovered/Not Resolved]
  - Myelosuppression [Not Recovered/Not Resolved]
  - Pyrexia [Not Recovered/Not Resolved]

NARRATIVE: CASE EVENT DATE: 20251011
